FAERS Safety Report 8850742 (Version 1)
Quarter: 2012Q4

REPORT INFORMATION
  Report Type: 
  Country: DK (occurrence: CA)
  Receive Date: 20121019
  Receipt Date: 20121019
  Transmission Date: 20130627
  Serious: Yes (Other)
  Sender: FDA-Public Use
  Company Number: CA-FRI-1000039604

PATIENT
  Age: 15 Year
  Sex: Female

DRUGS (1)
  1. ESCITALOPRAM [Suspect]
     Indication: DEPRESSION
     Dosage: 5 mg
     Route: 048
     Dates: start: 20121004, end: 20121009

REACTIONS (5)
  - Convulsion [Unknown]
  - Muscle contracture [Unknown]
  - Tremor [Unknown]
  - Fatigue [Unknown]
  - Off label use [Recovered/Resolved]
